FAERS Safety Report 16946024 (Version 2)
Quarter: 2019Q4

REPORT INFORMATION
  Report Type: Spontaneous
  Country: MX (occurrence: MX)
  Receive Date: 20191022
  Receipt Date: 20191120
  Transmission Date: 20200122
  Serious: Yes (Other)
  Sender: FDA-Public Use
  Company Number: MX-PFIZER INC-2019155713

PATIENT
  Age: 6 Year
  Sex: Male
  Weight: 23 kg

DRUGS (4)
  1. BENEFIX [Suspect]
     Active Substance: COAGULATION FACTOR IX RECOMBINANT HUMAN\ISOPROPYL ALCOHOL
     Indication: FACTOR IX DEFICIENCY
     Dosage: 2000 IU, ALTERNATE DAY
     Route: 042
  2. BENEFIX [Suspect]
     Active Substance: COAGULATION FACTOR IX RECOMBINANT HUMAN\ISOPROPYL ALCOHOL
     Indication: FACTOR IX DEFICIENCY
     Dosage: 2000 IU, UNK
     Route: 042
     Dates: start: 20191008, end: 20191013
  3. BENEFIX [Suspect]
     Active Substance: COAGULATION FACTOR IX RECOMBINANT HUMAN\ISOPROPYL ALCOHOL
     Dosage: 1000 IU, UNK
     Dates: start: 20191014, end: 20191015
  4. BENEFIX [Suspect]
     Active Substance: COAGULATION FACTOR IX RECOMBINANT HUMAN\ISOPROPYL ALCOHOL
     Dosage: 2000 IU, WEEKLY
     Route: 042
     Dates: start: 20191016

REACTIONS (8)
  - Haemorrhage [Recovering/Resolving]
  - Oedema peripheral [Unknown]
  - Feeling of despair [Recovering/Resolving]
  - Fall [Recovering/Resolving]
  - Pruritus [Recovering/Resolving]
  - Contusion [Unknown]
  - Joint injury [Recovering/Resolving]
  - Joint swelling [Recovering/Resolving]

NARRATIVE: CASE EVENT DATE: 201910
